FAERS Safety Report 8549272-2 (Version None)
Quarter: 2012Q3

REPORT INFORMATION
  Report Type: 
  Country: None (occurrence: None)
  Receive Date: 20120730
  Receipt Date: 20120718
  Transmission Date: 20120928
  Serious: Yes (Death)
  Sender: FDA-Public Use
  Company Number: JP-AMGEN-JPNSP2012040101

PATIENT
  Age: 88 Year
  Sex: Female
  Weight: 37 kg

DRUGS (7)
  1. ROMIPLOSTIM [Suspect]
     Dosage: 2 MUG/KG, QWK
     Dates: start: 20111118, end: 20111222
  2. ROMIPLOSTIM [Suspect]
     Dosage: 2 MUG/KG, QWK
     Dates: start: 20120113, end: 20120210
  3. PREDNISOLONE [Concomitant]
     Dosage: 5 MG, UNK
     Route: 048
  4. KAMIKIHITO [Concomitant]
     Dosage: UNK
     Route: 065
  5. ROMIPLOSTIM [Suspect]
     Dosage: 2 MUG/KG, QWK
     Dates: start: 20120213, end: 20120314
  6. ROMIPLOSTIM [Suspect]
     Indication: IDIOPATHIC THROMBOCYTOPENIC PURPURA
     Dosage: 2 MUG/KG, QWK
     Route: 058
     Dates: start: 20110520, end: 20120611
  7. RABEPRAZOLE SODIUM [Concomitant]
     Dosage: 10 MG, UNK

REACTIONS (3)
  - MELAENA [None]
  - HAEMATEMESIS [None]
  - HEPATIC FUNCTION ABNORMAL [None]
